FAERS Safety Report 16626862 (Version 1)
Quarter: 2019Q3

REPORT INFORMATION
  Report Type: Spontaneous
  Country: US (occurrence: US)
  Receive Date: 20190724
  Receipt Date: 20190724
  Transmission Date: 20191004
  Serious: No
  Sender: FDA-Public Use
  Company Number: US-SA-2019SA195067

PATIENT
  Age: 66 Year
  Sex: Female
  Weight: 76.19 kg

DRUGS (8)
  1. MELATONIN [Concomitant]
     Active Substance: MELATONIN
     Dosage: 5 MG
     Route: 065
  2. LANTUS [Suspect]
     Active Substance: INSULIN GLARGINE
     Indication: DIABETES MELLITUS
     Dosage: 10 U, HS
     Route: 065
     Dates: start: 20190415, end: 2019
  3. LANTUS [Suspect]
     Active Substance: INSULIN GLARGINE
     Dosage: 18 UNK
     Route: 065
     Dates: start: 2019, end: 20190616
  4. ESTRADIOL. [Suspect]
     Active Substance: ESTRADIOL
     Indication: VULVOVAGINAL DRYNESS
     Dosage: 10 UG TWICE WEEKLY ON TUESDAY AND FRIDAY FIRST THING IN THE MORNING
     Route: 067
     Dates: start: 20190312
  5. INSULIN LISPRO [Suspect]
     Active Substance: INSULIN LISPRO
     Indication: DIABETES MELLITUS
     Dosage: 4 U, TID
     Route: 065
     Dates: start: 20190613
  6. LANTUS [Suspect]
     Active Substance: INSULIN GLARGINE
     Dosage: 18 UNK
     Route: 065
     Dates: start: 20190617
  7. LANTUS [Suspect]
     Active Substance: INSULIN GLARGINE
     Dosage: 15 U, QD
     Route: 065
     Dates: start: 2019, end: 2019
  8. TRAMADOL HCL [Concomitant]
     Active Substance: TRAMADOL HYDROCHLORIDE
     Dosage: 50 MG
     Route: 065

REACTIONS (11)
  - Tremor [Recovered/Resolved]
  - Pruritus generalised [Unknown]
  - Nervousness [Recovered/Resolved]
  - Blood glucose decreased [Recovered/Resolved]
  - Product dose omission [Unknown]
  - Product dose omission [Unknown]
  - Blood glucose decreased [Recovered/Resolved]
  - Product dose omission [Unknown]
  - Blood glucose decreased [Recovered/Resolved]
  - Skin erosion [Recovered/Resolved]
  - Pruritus [Not Recovered/Not Resolved]

NARRATIVE: CASE EVENT DATE: 2019
